FAERS Safety Report 18275484 (Version 1)
Quarter: 2020Q3

REPORT INFORMATION
  Report Type: Other
  Country: US (occurrence: US)
  Receive Date: 20200916
  Receipt Date: 20200916
  Transmission Date: 20201103
  Serious: No
  Sender: FDA-Public Use
  Company Number: US-LEADIANT BIOSCIENCES INC-2020STPI000284

PATIENT
  Sex: Male

DRUGS (12)
  1. SERTRALINE [Concomitant]
     Active Substance: SERTRALINE HYDROCHLORIDE
  2. GABAPENTIN. [Concomitant]
     Active Substance: GABAPENTIN
  3. GARLIC [ALLIUM SATIVUM] [Concomitant]
     Active Substance: GARLIC
  4. CLONAZEPAM. [Concomitant]
     Active Substance: CLONAZEPAM
  5. MILK THISTLE 35000 PLUS TAURINE [Concomitant]
  6. LAMOTRIGINE. [Concomitant]
     Active Substance: LAMOTRIGINE
  7. VITAMIN D3 [Concomitant]
     Active Substance: CHOLECALCIFEROL
  8. ZONISAMIDE. [Concomitant]
     Active Substance: ZONISAMIDE
  9. HYDROXYZINE PAMOATE. [Concomitant]
     Active Substance: HYDROXYZINE PAMOATE
  10. ARIPRAZOLE [Concomitant]
     Active Substance: ARIPIPRAZOLE
  11. POTASSIUM [Concomitant]
     Active Substance: POTASSIUM
  12. MATULANE [Suspect]
     Active Substance: PROCARBAZINE HYDROCHLORIDE
     Indication: BRAIN NEOPLASM MALIGNANT
     Dosage: 150 MG DAILY ON DAYS 8?21 OF CYCLE
     Route: 048
     Dates: start: 20200103

REACTIONS (1)
  - Abdominal discomfort [Not Recovered/Not Resolved]
